FAERS Safety Report 17682623 (Version 2)
Quarter: 2020Q2

REPORT INFORMATION
  Report Type: Spontaneous
  Country: US (occurrence: US)
  Receive Date: 20200419
  Receipt Date: 20200501
  Transmission Date: 20200714
  Serious: No
  Sender: FDA-Public Use
  Company Number: US-TEVA-2020-US-1221950

PATIENT
  Age: 55 Year
  Sex: Female

DRUGS (1)
  1. CLONAZEPAM. [Suspect]
     Active Substance: CLONAZEPAM
     Indication: ANXIETY
     Dosage: 1 MILLIGRAM DAILY; TABLET SHAPE: ROUND, MOTTLED GREEN/TEVA/833
     Route: 065
     Dates: start: 20200304

REACTIONS (8)
  - Withdrawal syndrome [Unknown]
  - Product substitution issue [Unknown]
  - Panic attack [Unknown]
  - Anger [Unknown]
  - Anxiety [Unknown]
  - Drug ineffective [Unknown]
  - Product quality issue [Unknown]
  - Depression [Unknown]

NARRATIVE: CASE EVENT DATE: 20200304
